FAERS Safety Report 17184389 (Version 1)
Quarter: 2019Q4

REPORT INFORMATION
  Report Type: Spontaneous
  Country: ES (occurrence: ES)
  Receive Date: 20191220
  Receipt Date: 20191220
  Transmission Date: 20200122
  Serious: Yes (Life-Threatening, Hospitalization)
  Sender: FDA-Public Use
  Company Number: ES-TEVA-2019-ES-1153833

PATIENT
  Age: 86 Year
  Sex: Female

DRUGS (4)
  1. METAMIZOL (111A) [Interacting]
     Active Substance: METAMIZOL SODIUM
     Indication: PAIN
     Dosage: 575 MILLIGRAM
     Route: 048
     Dates: start: 20190808
  2. PARACETAMOL (12A) [Interacting]
     Active Substance: ACETAMINOPHEN
     Indication: PAIN
     Dosage: 1 GRAM
     Route: 048
     Dates: start: 20190808
  3. SINTROM [Interacting]
     Active Substance: ACENOCOUMAROL
     Indication: DEEP VEIN THROMBOSIS
     Route: 048
     Dates: start: 2010
  4. TRAMADOL HIDROCLORURO (2389CH) [Suspect]
     Active Substance: TRAMADOL
     Indication: PAIN
     Dosage: 250 MILLIGRAM
     Route: 048
     Dates: start: 20190726, end: 20190812

REACTIONS (2)
  - Upper gastrointestinal haemorrhage [Recovered/Resolved]
  - Drug interaction [Unknown]

NARRATIVE: CASE EVENT DATE: 20190811
